FAERS Safety Report 4701929-7 (Version None)
Quarter: 2005Q2

REPORT INFORMATION
  Report Type: 
  Country: None (occurrence: None)
  Receive Date: 20050627
  Receipt Date: 20050614
  Transmission Date: 20051028
  Serious: Yes (Other)
  Sender: FDA-Public Use
  Company Number: 2005087699

PATIENT
  Sex: Female
  Weight: 53.5244 kg

DRUGS (3)
  1. UNISOM [Suspect]
     Indication: SLEEP DISORDER
     Dosage: 1/2 TABLET HS PRN, ORAL
     Route: 048
     Dates: start: 20000101
  2. TYLENOL PM (DIPHENHYDRAMINE, PARACETAMOL) [Suspect]
     Indication: SLEEP DISORDER
  3. ASPIRIN [Concomitant]

REACTIONS (2)
  - DRUG ABUSER [None]
  - DRUG INEFFECTIVE [None]
